FAERS Safety Report 7050125-X (Version None)
Quarter: 2010Q4

REPORT INFORMATION
  Report Type: 
  Country: None (occurrence: None)
  Receive Date: 20101018
  Receipt Date: 20101005
  Transmission Date: 20110411
  Serious: Yes (Life-Threatening)
  Sender: FDA-Public Use
  Company Number: CA-MERCK-1010USA00594

PATIENT
  Age: 64 Year
  Sex: Female
  Weight: 125 kg

DRUGS (7)
  1. FOSAMAX [Suspect]
     Route: 048
  2. AVANDAMET [Suspect]
     Route: 065
  3. CALCIUM CARBONATE AND CHOLECALCIFEROL [Concomitant]
     Route: 065
  4. LISINOPRIL [Suspect]
     Route: 048
  5. METOPROLOL [Suspect]
     Route: 065
  6. HYDROCHLOROTHIAZIDE AND TRIAMTERENE [Suspect]
     Route: 065
  7. ZOCOR [Suspect]
     Route: 048

REACTIONS (2)
  - DYSPNOEA [None]
  - PULMONARY EMBOLISM [None]
